FAERS Safety Report 12977594 (Version 1)
Quarter: 2016Q4

REPORT INFORMATION
  Report Type: Spontaneous
  Country: US (occurrence: US)
  Receive Date: 20161125
  Receipt Date: 20161125
  Transmission Date: 20170207
  Serious: Yes (Hospitalization, Disabling)
  Sender: FDA-Public Use
  Company Number: None

PATIENT
  Age: 53 Year
  Sex: Female
  Weight: 61.2 kg

DRUGS (6)
  1. FISH OIL [Concomitant]
     Active Substance: FISH OIL
  2. CELEXA [Concomitant]
     Active Substance: CITALOPRAM HYDROBROMIDE
  3. PLAQUENIL [Concomitant]
     Active Substance: HYDROXYCHLOROQUINE SULFATE
  4. CALCIUM [Concomitant]
     Active Substance: CALCIUM
  5. PILOCARPINE HCL [Suspect]
     Active Substance: PILOCARPINE HYDROCHLORIDE
     Indication: SJOGREN^S SYNDROME
     Route: 048
     Dates: start: 20161118, end: 20161119
  6. VITAMIN D [Concomitant]
     Active Substance: CHOLECALCIFEROL

REACTIONS (17)
  - Hypertension [None]
  - Nausea [None]
  - Muscular weakness [None]
  - Anxiety [None]
  - Dizziness [None]
  - Vertigo [None]
  - Fatigue [None]
  - Nervous system disorder [None]
  - Pain in extremity [None]
  - Abdominal pain upper [None]
  - Diarrhoea [None]
  - Hyperhidrosis [None]
  - Decreased appetite [None]
  - Insomnia [None]
  - Body temperature fluctuation [None]
  - Malaise [None]
  - Fear [None]

NARRATIVE: CASE EVENT DATE: 20161119
